FAERS Safety Report 5443154-0 (Version None)
Quarter: 2007Q3

REPORT INFORMATION
  Report Type: 
  Country: None (occurrence: None)
  Receive Date: 20070905
  Receipt Date: 20070904
  Transmission Date: 20080115
  Serious: Yes (Disabling, Other)
  Sender: FDA-Public Use
  Company Number: US-PURDUE-USA_2007_0027687

PATIENT
  Sex: Female
  Weight: 71 kg

DRUGS (1)
  1. OXYCONTIN [Suspect]
     Indication: PAIN
     Dosage: 40 MG, SEE TEXT
     Dates: start: 19971101, end: 20030101

REACTIONS (7)
  - DRUG DEPENDENCE [None]
  - DRUG INEFFECTIVE [None]
  - FALL [None]
  - MALAISE [None]
  - MENTAL IMPAIRMENT [None]
  - PAIN [None]
  - WALKING DISABILITY [None]
